FAERS Safety Report 25209647 (Version 1)
Quarter: 2025Q2

REPORT INFORMATION
  Report Type: Spontaneous
  Country: US (occurrence: US)
  Receive Date: 20250417
  Receipt Date: 20250417
  Transmission Date: 20250717
  Serious: No
  Sender: PRASCO
  Company Number: US-Prasco Laboratories-PRAS20250155

PATIENT
  Age: 83 Year
  Sex: Female

DRUGS (1)
  1. ESTRADIOL [Suspect]
     Active Substance: ESTRADIOL
     Indication: Blood oestrogen decreased
     Route: 067
     Dates: start: 20250404, end: 20250406

REACTIONS (3)
  - Vertigo [Recovered/Resolved]
  - Off label use [None]
  - Wrong technique in product usage process [None]

NARRATIVE: CASE EVENT DATE: 20250404
